FAERS Safety Report 20797090 (Version 1)
Quarter: 2022Q2

REPORT INFORMATION
  Report Type: Spontaneous
  Country: US (occurrence: US)
  Receive Date: 20220506
  Receipt Date: 20220506
  Transmission Date: 20220721
  Serious: No
  Sender: FDA-Public Use
  Company Number: US-BRISTOL-MYERS SQUIBB COMPANY-2022-019451

PATIENT
  Age: 78 Year
  Sex: Male
  Weight: 80.73 kg

DRUGS (1)
  1. REVLIMID [Suspect]
     Active Substance: LENALIDOMIDE
     Indication: Plasma cell myeloma
     Dosage: DAILY 21 DAYS ON , 7 DAYS OFF
     Route: 048
     Dates: start: 20220101

REACTIONS (3)
  - Oropharyngeal pain [Unknown]
  - Pain [Unknown]
  - Headache [Unknown]
